FAERS Safety Report 8503326-5 (Version None)
Quarter: 2012Q2

REPORT INFORMATION
  Report Type: 
  Country: None (occurrence: None)
  Receive Date: 20120405
  Receipt Date: 20100518
  Transmission Date: 20120825
  Serious: Yes (Other)
  Sender: FDA-Public Use
  Company Number: PHEH2010US02578

PATIENT
  Sex: Female

DRUGS (5)
  1. KLONOPIN [Concomitant]
  2. PREDNISONE TAB [Concomitant]
  3. RECLAST [Suspect]
     Indication: OSTEOPOROSIS
     Dosage: 5 MG YEARLY, INTRAVENOUS
     Route: 042
     Dates: start: 20100203
  4. PROMETHAZINE [Concomitant]
  5. DAPSONE [Concomitant]

REACTIONS (2)
  - PYREXIA [None]
  - MYALGIA [None]
